FAERS Safety Report 5683019-2 (Version None)
Quarter: 2008Q1

REPORT INFORMATION
  Report Type: 
  Country: None (occurrence: None)
  Receive Date: 20080327
  Receipt Date: 20080324
  Transmission Date: 20080703
  Serious: Yes (Death, Life-Threatening, Other)
  Sender: FDA-Public Use
  Company Number: HQWYE630502FEB06

PATIENT
  Age: 50 Year
  Sex: Female
  Weight: 41 kg

DRUGS (10)
  1. MYLOTARG [Suspect]
     Indication: ACUTE MYELOID LEUKAEMIA
     Route: 041
     Dates: start: 20051208, end: 20051208
  2. MYLOTARG [Suspect]
     Route: 041
     Dates: start: 20051124, end: 20051124
  3. MYLOTARG [Suspect]
     Route: 041
     Dates: start: 20070207, end: 20070207
  4. MYLOTARG [Suspect]
     Route: 041
     Dates: start: 20070221, end: 20070221
  5. REBAMIPIDE [Concomitant]
     Indication: PROPHYLAXIS
     Dosage: 300 MG/DAY
     Route: 048
     Dates: start: 20050727
  6. VFEND [Concomitant]
     Indication: PNEUMONIA
     Dosage: 340 MG/DAY
     Route: 041
     Dates: start: 20051028
  7. MEROPEN [Concomitant]
     Indication: PNEUMONIA
     Dosage: 1.5 G/DAY
     Route: 041
     Dates: start: 20051009, end: 20060120
  8. ARBEKACIN [Concomitant]
     Indication: PNEUMONIA
     Dosage: 120 MG
     Route: 041
     Dates: start: 20051009, end: 20051209
  9. RANITIDINE HYDROCHLORIDE [Concomitant]
     Indication: PROPHYLAXIS
     Dosage: 300 MG/DAY
     Route: 048
     Dates: start: 20050727
  10. LEVOFLOXACIN [Concomitant]
     Indication: PROPHYLAXIS
     Dosage: 300 MG/DAY
     Route: 048
     Dates: start: 20051009, end: 20060111

REACTIONS (10)
  - ANAEMIA [None]
  - BLOOD LACTATE DEHYDROGENASE INCREASED [None]
  - DISSEMINATED INTRAVASCULAR COAGULATION [None]
  - HYPOKALAEMIA [None]
  - NEUTROPHIL COUNT DECREASED [None]
  - PLATELET COUNT DECREASED [None]
  - PNEUMONIA [None]
  - SEPSIS [None]
  - TUMOUR LYSIS SYNDROME [None]
  - WHITE BLOOD CELL COUNT DECREASED [None]
